FAERS Safety Report 15889670 (Version 2)
Quarter: 2019Q1

REPORT INFORMATION
  Report Type: Spontaneous
  Country: EG (occurrence: EG)
  Receive Date: 20190130
  Receipt Date: 20190226
  Transmission Date: 20190417
  Serious: Yes (Other)
  Sender: FDA-Public Use
  Company Number: EG-JNJFOC-20190127790

PATIENT
  Age: 28 Year
  Sex: Female

DRUGS (1)
  1. SIMPONI [Suspect]
     Active Substance: GOLIMUMAB
     Indication: COLITIS ULCERATIVE
     Route: 058
     Dates: start: 201807

REACTIONS (2)
  - Drug ineffective [Unknown]
  - Colectomy [Unknown]
